FAERS Safety Report 10057893 (Version 2)
Quarter: 2014Q2

REPORT INFORMATION
  Report Type: Spontaneous
  Country: US (occurrence: US)
  Receive Date: 20140404
  Receipt Date: 20140409
  Transmission Date: 20141212
  Serious: No
  Sender: FDA-Public Use
  Company Number: US-009507513-1404USA000227

PATIENT
  Age: 85 Year
  Sex: Female
  Weight: 79.37 kg

DRUGS (2)
  1. JANUVIA [Suspect]
     Indication: TYPE 2 DIABETES MELLITUS
     Dosage: 100 MG TABLET DAILY
     Route: 048
     Dates: start: 20140310, end: 20140311
  2. CORTIZONE [Concomitant]

REACTIONS (2)
  - Gastrointestinal motility disorder [Recovering/Resolving]
  - Diarrhoea [Recovering/Resolving]
